FAERS Safety Report 14961671 (Version 1)
Quarter: 2018Q2

REPORT INFORMATION
  Report Type: Spontaneous
  Country: CN (occurrence: CN)
  Receive Date: 20180601
  Receipt Date: 20180601
  Transmission Date: 20180711
  Serious: Yes (Life-Threatening)
  Sender: FDA-Public Use
  Company Number: CN-AMGEN-CHNSP2018074149

PATIENT
  Age: 5 Decade
  Sex: Male

DRUGS (1)
  1. GRAN [Suspect]
     Active Substance: FILGRASTIM
     Indication: PLASMA CELL MYELOMA
     Dosage: 300 MUG, SINGLE
     Route: 058
     Dates: start: 20180526, end: 20180526

REACTIONS (1)
  - Shock [Recovered/Resolved]
